FAERS Safety Report 10026127 (Version 2)
Quarter: 2014Q1

REPORT INFORMATION
  Report Type: Spontaneous
  Country: US (occurrence: US)
  Receive Date: 20140320
  Receipt Date: 20140320
  Transmission Date: 20141002
  Serious: No
  Sender: FDA-Public Use
  Company Number: US-ALLERGAN-1402753US

PATIENT
  Age: 78 Year
  Sex: Female

DRUGS (23)
  1. LUMIGAN 0.01% [Suspect]
     Indication: GLAUCOMA
     Dosage: 2 GTT, UNK
     Route: 047
  2. LUMIGAN 0.01% [Suspect]
     Dosage: 1 GTT, QD
     Route: 047
  3. COMBIGAN[R] [Suspect]
     Indication: GLAUCOMA
     Dosage: 2 GTT, BID
     Route: 047
  4. AZOPT [Suspect]
     Indication: GLAUCOMA
     Dosage: 2 GTT, UNK
     Route: 047
  5. METFORMIN [Concomitant]
     Indication: PRODUCT USED FOR UNKNOWN INDICATION
  6. PLAVIX [Concomitant]
     Indication: PRODUCT USED FOR UNKNOWN INDICATION
  7. AMLODIPINE [Concomitant]
     Indication: PRODUCT USED FOR UNKNOWN INDICATION
  8. EFFEXOR XR [Concomitant]
     Indication: PRODUCT USED FOR UNKNOWN INDICATION
  9. PRILOSEC                           /00661201/ [Concomitant]
     Indication: PRODUCT USED FOR UNKNOWN INDICATION
  10. DIOVAN [Concomitant]
     Indication: PRODUCT USED FOR UNKNOWN INDICATION
  11. LYRICA [Concomitant]
     Indication: PRODUCT USED FOR UNKNOWN INDICATION
  12. TRICOR                             /00090101/ [Concomitant]
     Indication: PRODUCT USED FOR UNKNOWN INDICATION
  13. LIPITOR [Concomitant]
     Indication: PRODUCT USED FOR UNKNOWN INDICATION
  14. METOPROLOL [Concomitant]
     Indication: PRODUCT USED FOR UNKNOWN INDICATION
  15. BABY ASA [Concomitant]
     Indication: PRODUCT USED FOR UNKNOWN INDICATION
  16. LOVAZA [Concomitant]
     Indication: PRODUCT USED FOR UNKNOWN INDICATION
  17. VESICARE [Concomitant]
     Indication: PRODUCT USED FOR UNKNOWN INDICATION
  18. HYDROCODONE/APAP [Concomitant]
     Indication: ARTHRALGIA
  19. HYDROCODONE/APAP [Concomitant]
     Indication: BACK PAIN
  20. HYDROCODONE/APAP [Concomitant]
     Indication: ARTHRALGIA
  21. ULTRAM                             /00599202/ [Concomitant]
     Indication: BACK PAIN
  22. ULTRAM                             /00599202/ [Concomitant]
     Indication: ARTHRALGIA
  23. ULTRAM                             /00599202/ [Concomitant]
     Indication: ARTHRALGIA

REACTIONS (2)
  - Intraocular pressure increased [Not Recovered/Not Resolved]
  - Expired drug administered [Unknown]
